FAERS Safety Report 9340908 (Version 2)
Quarter: 2014Q2

REPORT INFORMATION
  Report Type: Other
  Country: IT (occurrence: IT)
  Receive Date: 20130610
  Receipt Date: 20140428
  Transmission Date: 20141212
  Serious: Yes (Hospitalization)
  Sender: FDA-Public Use
  Company Number: IT-ACTAVIS-2013-10677

PATIENT
  Age: 41 Year
  Sex: Female

DRUGS (2)
  1. ALPRAZOLAM (UNKNOWN) [Suspect]
     Indication: DEPRESSION
     Dosage: 0.25 MG, TWO PACKS
     Route: 048
     Dates: start: 20130125, end: 20130125
  2. PAROXETINE /00830802/ [Suspect]
     Indication: DEPRESSION
     Dosage: 5 MG, TOTAL
     Route: 048
     Dates: start: 20130125, end: 20130125

REACTIONS (4)
  - Sopor [Recovering/Resolving]
  - Tremor [Recovering/Resolving]
  - Nausea [Recovering/Resolving]
  - Drug abuse [Recovering/Resolving]
